FAERS Safety Report 12561906 (Version 1)
Quarter: 2016Q3

REPORT INFORMATION
  Report Type: Spontaneous
  Country: DE (occurrence: DE)
  Receive Date: 20160715
  Receipt Date: 20160715
  Transmission Date: 20161109
  Serious: Yes (Death, Life-Threatening, Other)
  Sender: FDA-Public Use
  Company Number: DE-009507513-1606DEU011012

PATIENT
  Age: 83 Year
  Sex: Male
  Weight: 110 kg

DRUGS (5)
  1. COLISTIN [Concomitant]
     Active Substance: COLISTIN
     Indication: PNEUMONIA
     Dosage: 4.5 DF, BID
     Dates: start: 20160613, end: 20160623
  2. CASPOFUNGIN ACETATE [Concomitant]
     Active Substance: CASPOFUNGIN ACETATE
     Indication: INFECTION
     Dosage: 70 MG, ONCE
     Dates: start: 20160615, end: 20160624
  3. ZERBAXA [Suspect]
     Active Substance: CEFTOLOZANE SULFATE\TAZOBACTAM SODIUM
     Indication: LUNG INFECTION PSEUDOMONAL
     Dosage: 1.5 MG, TID
     Route: 041
     Dates: start: 20160616, end: 20160624
  4. ZERBAXA [Suspect]
     Active Substance: CEFTOLOZANE SULFATE\TAZOBACTAM SODIUM
     Indication: PNEUMONIA
  5. FOSFOMYCIN [Concomitant]
     Active Substance: FOSFOMYCIN
     Indication: PNEUMONIA
     Dosage: 5 G, TID
     Dates: start: 20160623, end: 20160624

REACTIONS (3)
  - Pneumococcal sepsis [Fatal]
  - Multiple organ dysfunction syndrome [Fatal]
  - Product use issue [Unknown]

NARRATIVE: CASE EVENT DATE: 20160622
